FAERS Safety Report 4342125-5 (Version None)
Quarter: 2004Q2

REPORT INFORMATION
  Report Type: 
  Country: None (occurrence: None)
  Receive Date: 20040409
  Receipt Date: 20030826
  Transmission Date: 20050107
  Serious: Yes (Hospitalization)
  Sender: FDA-Public Use
  Company Number: 03P-163-0231324-00

PATIENT
  Age: 34 Year
  Sex: Female
  Weight: 120 kg

DRUGS (4)
  1. DEPAKOTE [Suspect]
     Indication: BIPOLAR DISORDER
     Dosage: 2 GM
     Dates: start: 20021101, end: 20021216
  2. TRILEPTAL [Suspect]
     Dosage: 300 MG, AT BEDTIME
     Dates: end: 20030714
  3. SEROQUEL [Suspect]
     Indication: INSOMNIA
     Dosage: 600 MG, AT BEDTIME
     Dates: end: 20030714
  4. HALDOL [Suspect]
     Dosage: 10 MG, 1 IN 1 D
     Dates: end: 20030714

REACTIONS (10)
  - ALANINE AMINOTRANSFERASE INCREASED [None]
  - ASPARTATE AMINOTRANSFERASE INCREASED [None]
  - BLOOD ALKALINE PHOSPHATASE INCREASED [None]
  - BLOOD SODIUM DECREASED [None]
  - CONDITION AGGRAVATED [None]
  - NIGHT SWEATS [None]
  - OEDEMA [None]
  - OVERDOSE [None]
  - VOMITING [None]
  - WEIGHT INCREASED [None]
